FAERS Safety Report 21212193 (Version 1)
Quarter: 2022Q3

REPORT INFORMATION
  Report Type: Spontaneous
  Country: US (occurrence: US)
  Receive Date: 20220815
  Receipt Date: 20220815
  Transmission Date: 20221027
  Serious: No
  Sender: FDA-Public Use
  Company Number: US-C B Fleet Co Inc-202201-US-000059

PATIENT
  Sex: Female

DRUGS (2)
  1. TAGAMET [Suspect]
     Active Substance: CIMETIDINE
     Indication: Dyspepsia
     Dosage: USED 2 DAYS
     Route: 048
  2. TAGAMET [Suspect]
     Active Substance: CIMETIDINE
     Indication: Gastrooesophageal reflux disease

REACTIONS (1)
  - Diarrhoea [Not Recovered/Not Resolved]
